FAERS Safety Report 4542167-0 (Version None)
Quarter: 2004Q4

REPORT INFORMATION
  Report Type: 
  Country: None (occurrence: None)
  Receive Date: 20041227
  Receipt Date: 20041214
  Transmission Date: 20050328
  Serious: Yes (Hospitalization)
  Sender: FDA-Public Use
  Company Number: 2004SP000323

PATIENT
  Age: 66 Year
  Sex: Male

DRUGS (4)
  1. XOPENEX [Suspect]
     Indication: CHRONIC OBSTRUCTIVE AIRWAYS DISEASE
     Dosage: 1.25 MG/3ML; Q6H; INHALATION
     Route: 055
     Dates: start: 20030101
  2. XANAX [Concomitant]
  3. METOPROLOL [Concomitant]
  4. VIOXX [Concomitant]

REACTIONS (5)
  - APNOEA [None]
  - BLOOD PRESSURE INADEQUATELY CONTROLLED [None]
  - DYSPNOEA [None]
  - FORMICATION [None]
  - PRURITUS GENERALISED [None]
